FAERS Safety Report 11380953 (Version 2)
Quarter: 2015Q3

REPORT INFORMATION
  Report Type: Report from Study
  Country: US (occurrence: US)
  Receive Date: 20150814
  Receipt Date: 20150911
  Transmission Date: 20151125
  Serious: No
  Sender: FDA-Public Use
  Company Number: PHEH2015US013952

PATIENT
  Age: 61 Year
  Sex: Female
  Weight: 68.3 kg

DRUGS (3)
  1. GILENYA [Suspect]
     Active Substance: FINGOLIMOD HYDROCHLORIDE
     Indication: MULTIPLE SCLEROSIS
     Dosage: 0.5 MG, QD
     Route: 048
     Dates: start: 20150715
  2. PROPRANOLOL [Concomitant]
     Active Substance: PROPRANOLOL\PROPRANOLOL HYDROCHLORIDE
     Indication: BLOOD PRESSURE ABNORMAL
     Route: 065
  3. COPAXONE [Concomitant]
     Active Substance: GLATIRAMER ACETATE
     Indication: PRODUCT USED FOR UNKNOWN INDICATION
     Route: 065

REACTIONS (13)
  - Memory impairment [Recovering/Resolving]
  - Blood pressure decreased [Recovering/Resolving]
  - Weight increased [Unknown]
  - Dizziness [Unknown]
  - Head titubation [Unknown]
  - Pain in extremity [Unknown]
  - Trigger finger [Unknown]
  - Constipation [Unknown]
  - Diplopia [Recovered/Resolved]
  - Gait disturbance [Unknown]
  - Headache [Recovered/Resolved]
  - Fall [Unknown]
  - Confusional state [Unknown]

NARRATIVE: CASE EVENT DATE: 20150715
